FAERS Safety Report 6737310-9 (Version None)
Quarter: 2010Q2

REPORT INFORMATION
  Report Type: 
  Country: None (occurrence: None)
  Receive Date: 20100524
  Receipt Date: 20100513
  Transmission Date: 20101027
  Serious: No
  Sender: FDA-Public Use
  Company Number: 2008BI017006

PATIENT
  Age: 39 Year
  Sex: Female

DRUGS (1)
  1. TYSABRI [Suspect]
     Indication: MULTIPLE SCLEROSIS
     Route: 042
     Dates: start: 20080611

REACTIONS (13)
  - ANXIETY [None]
  - BLINDNESS TRANSIENT [None]
  - DRUG EFFECT DECREASED [None]
  - DRY MOUTH [None]
  - FATIGUE [None]
  - HEADACHE [None]
  - MIGRAINE [None]
  - NAUSEA [None]
  - PARAESTHESIA [None]
  - POOR VENOUS ACCESS [None]
  - RETINITIS [None]
  - SLUGGISHNESS [None]
  - VASCULAR RUPTURE [None]
